FAERS Safety Report 16260125 (Version 5)
Quarter: 2019Q3

REPORT INFORMATION
  Report Type: Spontaneous
  Country: US (occurrence: US)
  Receive Date: 20190501
  Receipt Date: 20190814
  Transmission Date: 20191004
  Serious: Yes (Other)
  Sender: FDA-Public Use
  Company Number: US-PFIZER INC-2019179174

PATIENT
  Age: 88 Year
  Sex: Female
  Weight: 63.5 kg

DRUGS (10)
  1. METOPROLOL TARTRATE. [Concomitant]
     Active Substance: METOPROLOL TARTRATE
     Dosage: UNK
  2. METOPROLOL SUCCINATE. [Concomitant]
     Active Substance: METOPROLOL SUCCINATE
     Dosage: 50 MG, 2X/DAY
  3. ELIQUIS [Concomitant]
     Active Substance: APIXABAN
     Dosage: 2.5 MG, 2X/DAY
  4. OMEPRAZOLE. [Concomitant]
     Active Substance: OMEPRAZOLE
     Dosage: 20 MG, 1X/DAY
  5. TIKOSYN [Suspect]
     Active Substance: DOFETILIDE
     Dosage: UNK UNK, 2X/DAY
     Route: 048
  6. ARMOUR THYROID [Concomitant]
     Active Substance: THYROID, PORCINE
     Dosage: 30 MG, 1X/DAY
  7. TIKOSYN [Suspect]
     Active Substance: DOFETILIDE
     Dosage: 0.25 MG (OR 250 MCG), 2X/DAY
     Route: 048
  8. ATORVASTATIN CALCIUM. [Concomitant]
     Active Substance: ATORVASTATIN CALCIUM
     Dosage: 20 MG, 1X/DAY
  9. TIKOSYN [Suspect]
     Active Substance: DOFETILIDE
     Indication: ATRIAL FIBRILLATION
     Dosage: 0.25 MG (OR 250 MCG), 2X/DAY
     Route: 048
  10. TIKOSYN [Suspect]
     Active Substance: DOFETILIDE
     Dosage: 250 MG, 1X/DAY
     Dates: start: 2016

REACTIONS (10)
  - Sneezing [Unknown]
  - Malaise [Recovered/Resolved]
  - Cough [Not Recovered/Not Resolved]
  - Dizziness [Recovered/Resolved]
  - Fatigue [Recovered/Resolved]
  - Pain [Recovering/Resolving]
  - Visual impairment [Unknown]
  - Hip fracture [Unknown]
  - Nasopharyngitis [Recovered/Resolved]
  - Asthenia [Unknown]
